FAERS Safety Report 25709258 (Version 1)
Quarter: 2025Q3

REPORT INFORMATION
  Report Type: Spontaneous
  Country: CA (occurrence: CA)
  Receive Date: 20250821
  Receipt Date: 20250821
  Transmission Date: 20251020
  Serious: Yes (Hospitalization, Other)
  Sender: Haleon PLC
  Company Number: CA-HALEON-2258642

PATIENT
  Age: 39 Year
  Sex: Female

DRUGS (1)
  1. TUMS ULTRA [Suspect]
     Active Substance: CALCIUM CARBONATE
     Indication: Abdominal pain upper

REACTIONS (3)
  - Pancreatitis [Recovered/Resolved]
  - Milk-alkali syndrome [Recovered/Resolved]
  - Maternal exposure during pregnancy [Recovered/Resolved]
